FAERS Safety Report 7760163-7 (Version None)
Quarter: 2011Q3

REPORT INFORMATION
  Report Type: 
  Country: None (occurrence: None)
  Receive Date: 20110919
  Receipt Date: 20110912
  Transmission Date: 20111222
  Serious: Yes (Death, Life-Threatening, Hospitalization)
  Sender: FDA-Public Use
  Company Number: FR-CELGENEUS-056-50794-11091401

PATIENT
  Sex: Female

DRUGS (2)
  1. VIDAZA [Suspect]
     Indication: ACUTE MYELOID LEUKAEMIA
     Dosage: 100 MILLIGRAM
     Route: 058
     Dates: start: 20100119, end: 20100126
  2. VIDAZA [Suspect]
     Dosage: 100 MILLIGRAM
     Dates: start: 20100413, end: 20100413

REACTIONS (6)
  - CARDIOPULMONARY FAILURE [None]
  - PERICARDIAL EFFUSION [None]
  - PULMONARY EMBOLISM [None]
  - ASCITES [None]
  - PLEURAL EFFUSION [None]
  - ACUTE POLYNEUROPATHY [None]
